FAERS Safety Report 5622043-2 (Version None)
Quarter: 2008Q1

REPORT INFORMATION
  Report Type: 
  Country: None (occurrence: None)
  Receive Date: 20080211
  Receipt Date: 20080206
  Transmission Date: 20080703
  Serious: Yes (Death)
  Sender: FDA-Public Use
  Company Number: US-BRISTOL-MYERS SQUIBB COMPANY-13657879

PATIENT
  Age: 71 Year
  Sex: Female

DRUGS (11)
  1. ORENCIA [Suspect]
     Indication: RHEUMATOID ARTHRITIS
     Route: 042
     Dates: start: 20060614, end: 20070112
  2. VERAPAMIL [Concomitant]
  3. FUROSEMIDE [Concomitant]
  4. LEVOTHYROXINE SODIUM [Concomitant]
  5. TOPROL [Concomitant]
  6. DIGOXIN [Concomitant]
  7. WARFARIN SODIUM [Concomitant]
  8. HYDROCODONE BITARTRATE [Concomitant]
  9. TYLENOL EXTRA STRENGTH [Concomitant]
  10. MAALOX [Concomitant]
  11. ASCORBIC ACID [Concomitant]

REACTIONS (1)
  - DEATH [None]
